FAERS Safety Report 13948833 (Version 2)
Quarter: 2017Q3

REPORT INFORMATION
  Report Type: Spontaneous
  Country: GB (occurrence: GB)
  Receive Date: 20170908
  Receipt Date: 20170908
  Transmission Date: 20171128
  Serious: Yes (Other)
  Sender: FDA-Public Use
  Company Number: GB-JNJFOC-20170905271

PATIENT
  Age: 38 Year
  Sex: Female

DRUGS (2)
  1. XARELTO [Suspect]
     Active Substance: RIVAROXABAN
     Indication: PULMONARY EMBOLISM
     Route: 048
  2. XARELTO [Suspect]
     Active Substance: RIVAROXABAN
     Indication: PULMONARY EMBOLISM
     Route: 048
     Dates: start: 201706

REACTIONS (9)
  - Chest pain [Unknown]
  - Product use issue [Unknown]
  - Pruritus [Unknown]
  - Drug dose omission [Unknown]
  - Pain in extremity [Unknown]
  - Blood pressure increased [Unknown]
  - Hypokalaemia [Unknown]
  - Heart rate increased [Unknown]
  - Metrorrhagia [Unknown]
